FAERS Safety Report 11602987 (Version 2)
Quarter: 2016Q4

REPORT INFORMATION
  Report Type: Report from Study
  Country: US (occurrence: US)
  Receive Date: 20151006
  Receipt Date: 20161005
  Transmission Date: 20170206
  Serious: No
  Sender: FDA-Public Use
  Company Number: US-AMGEN-USASP2015070415

PATIENT
  Age: 74 Year
  Sex: Female

DRUGS (10)
  1. LOSARTAN. [Concomitant]
     Active Substance: LOSARTAN
  2. CYCLOBENZAPRINE [Concomitant]
     Active Substance: CYCLOBENZAPRINE
  3. PROTONIX                           /00661201/ [Concomitant]
     Active Substance: OMEPRAZOLE
  4. BABY ASPIRIN [Concomitant]
     Active Substance: ASPIRIN
  5. ZYRTEC [Concomitant]
     Active Substance: CETIRIZINE HYDROCHLORIDE
  6. PRAVASTATIN. [Concomitant]
     Active Substance: PRAVASTATIN
  7. LYRICA [Concomitant]
     Active Substance: PREGABALIN
  8. PROLIA [Suspect]
     Active Substance: DENOSUMAB
     Indication: OSTEOPOROSIS
     Dosage: UNK
     Route: 065
  9. METOPROLOL. [Concomitant]
     Active Substance: METOPROLOL
  10. TRAZODONE [Concomitant]
     Active Substance: TRAZODONE HYDROCHLORIDE

REACTIONS (3)
  - Tooth fracture [Unknown]
  - Tooth loss [Unknown]
  - Tooth disorder [Unknown]
